FAERS Safety Report 6132582-6 (Version None)
Quarter: 2009Q1

REPORT INFORMATION
  Report Type: 
  Country: None (occurrence: None)
  Receive Date: 20090324
  Receipt Date: 20090309
  Transmission Date: 20090719
  Serious: Yes (Life-Threatening)
  Sender: FDA-Public Use
  Company Number: 2009000736

PATIENT
  Age: 64 Year
  Sex: Male

DRUGS (11)
  1. ERLOTINIB (ERLOTINIB) (TABLET) (ERLOTINIB) [Suspect]
     Indication: ADENOCARCINOMA PANCREAS
     Dosage: 100 MG, QD, ORAL
     Route: 048
     Dates: start: 20081015, end: 20090128
  2. PERINDOPRIL ERBUMINE [Concomitant]
  3. SECTRAL [Concomitant]
  4. PREDNISONE [Concomitant]
  5. KARDEGIC (ACETYLSALICYLATE LYSINE) [Concomitant]
  6. PLAVIX [Concomitant]
  7. TRANXENE [Concomitant]
  8. NEXIUM [Concomitant]
  9. ATORVASTATIN CALCIUM [Concomitant]
  10. AMITRIPTYLINE HCL [Concomitant]
  11. ANTALVIC [Concomitant]

REACTIONS (1)
  - PULMONARY EMBOLISM [None]
